FAERS Safety Report 6156342-5 (Version None)
Quarter: 2009Q2

REPORT INFORMATION
  Report Type: 
  Country: None (occurrence: None)
  Receive Date: 20090415
  Receipt Date: 20090409
  Transmission Date: 20091009
  Serious: Yes (Other)
  Sender: FDA-Public Use
  Company Number: US-JNJCH-2009010054

PATIENT
  Age: 73 Year
  Sex: Female
  Weight: 61.7 kg

DRUGS (2)
  1. FRESHBURST LISTERINE MOUTHWASH [Suspect]
     Indication: DENTAL DISORDER PROPHYLAXIS
     Dosage: TEXT:UNSPECIFIED
     Route: 048
  2. BENICAR [Concomitant]
     Indication: HYPERTENSION
     Dosage: TEXT:UNSPECIFIED
     Route: 065

REACTIONS (1)
  - SWOLLEN TONGUE [None]
